FAERS Safety Report 9684130 (Version 1)
Quarter: 2013Q4

REPORT INFORMATION
  Report Type: Spontaneous
  Country: US (occurrence: US)
  Receive Date: 20131112
  Receipt Date: 20131112
  Transmission Date: 20140711
  Serious: Yes (Other)
  Sender: FDA-Public Use
  Company Number: US-ACTAVIS-2013-19979

PATIENT
  Sex: Male
  Weight: 70 kg

DRUGS (1)
  1. FENTANYL-50 (WATSON LABORATORIES) [Suspect]
     Indication: CANCER PAIN
     Dosage: 1 DF, EVERY 3 DAYS
     Route: 062
     Dates: start: 2013

REACTIONS (4)
  - Muscle spasms [Not Recovered/Not Resolved]
  - Fatigue [Not Recovered/Not Resolved]
  - Depressed mood [Not Recovered/Not Resolved]
  - Hyperhidrosis [Recovering/Resolving]
